FAERS Safety Report 7151418-8 (Version None)
Quarter: 2010Q4

REPORT INFORMATION
  Report Type: 
  Country: None (occurrence: None)
  Receive Date: 20101210
  Receipt Date: 20101130
  Transmission Date: 20110411
  Serious: Yes (Congenital Anomaly)
  Sender: FDA-Public Use
  Company Number: US-GILEAD-2010-0033965

PATIENT

DRUGS (3)
  1. TRUVADA [Suspect]
     Indication: HIV INFECTION
     Route: 048
     Dates: start: 20100917
  2. RITONAVIR [Concomitant]
     Indication: HIV INFECTION
     Route: 048
     Dates: start: 20100917
  3. ATAZANAVIR SULFATE [Concomitant]
     Indication: HIV INFECTION
     Route: 048
     Dates: start: 20100917

REACTIONS (1)
  - ULTRASOUND ANTENATAL SCREEN ABNORMAL [None]
